FAERS Safety Report 18477286 (Version 1)
Quarter: 2020Q4

REPORT INFORMATION
  Report Type: Spontaneous
  Country: SE (occurrence: SE)
  Receive Date: 20201107
  Receipt Date: 20201107
  Transmission Date: 20210114
  Serious: Yes (Life-Threatening)
  Sender: FDA-Public Use
  Company Number: SE-TEVA-2020-SE-1844892

PATIENT
  Age: 39 Year
  Sex: Female
  Weight: 68 kg

DRUGS (1)
  1. MIRTAZAPIN ACTAVIS 15 MG FILMDRAGERAD TABLETT [Suspect]
     Active Substance: MIRTAZAPINE
     Indication: SLEEP DISORDER
     Dosage: HALF TO 1 TABLET IN THE EVENING.
     Dates: start: 20200901, end: 20200921

REACTIONS (2)
  - Weight increased [Recovered/Resolved with Sequelae]
  - Suicidal ideation [Recovered/Resolved with Sequelae]

NARRATIVE: CASE EVENT DATE: 202009
